FAERS Safety Report 4973076-0 (Version None)
Quarter: 2006Q2

REPORT INFORMATION
  Report Type: 
  Country: None (occurrence: None)
  Receive Date: 20060414
  Receipt Date: 20060404
  Transmission Date: 20061013
  Serious: Yes (Hospitalization)
  Sender: FDA-Public Use
  Company Number: IT-ROCHE-442955

PATIENT
  Age: 68 Year
  Sex: Male
  Weight: 62 kg

DRUGS (4)
  1. CAPECITABINE [Suspect]
     Dosage: DAYS 2-15, AS PER PROTOCOL REPORTED DOSE = 3600MG
     Route: 048
     Dates: start: 20060322, end: 20060331
  2. AVASTIN [Suspect]
     Dosage: DAY 1, AS PER PROTOCOL REPORTED DOSE = 500MG
     Route: 042
     Dates: start: 20060322
  3. IRINOTECAN [Suspect]
     Dosage: DAY 1, AS PER PROTOCOL REPORTED DOSE = 430MG
     Route: 042
  4. LOPERAMIDE [Suspect]
     Route: 065
     Dates: start: 20060328, end: 20060331

REACTIONS (1)
  - INTESTINAL OBSTRUCTION [None]
